FAERS Safety Report 8286849-6 (Version None)
Quarter: 2012Q2

REPORT INFORMATION
  Report Type: 
  Country: None (occurrence: None)
  Receive Date: 20120416
  Receipt Date: 20120405
  Transmission Date: 20120825
  Serious: Yes (Hospitalization)
  Sender: FDA-Public Use
  Company Number: FR-SANOFI-AVENTIS-2012SA013619

PATIENT
  Age: 59 Year
  Sex: Male
  Weight: 83 kg

DRUGS (6)
  1. RANITIDINE [Concomitant]
     Route: 042
     Dates: start: 20120202, end: 20120202
  2. DEXAMETHASONE [Concomitant]
     Route: 042
     Dates: start: 20120202, end: 20120202
  3. JEVTANA KIT [Suspect]
     Indication: PROSTATE CANCER METASTATIC
     Route: 042
     Dates: start: 20120202, end: 20120202
  4. PREDNISONE TAB [Concomitant]
     Route: 048
     Dates: start: 20120202, end: 20120221
  5. TAXOTERE [Suspect]
     Indication: PROSTATE CANCER
     Route: 042
     Dates: start: 20110201, end: 20110601
  6. CORTICOSTEROIDS [Concomitant]

REACTIONS (5)
  - HISTIOCYTOSIS HAEMATOPHAGIC [None]
  - SERUM FERRITIN INCREASED [None]
  - MYELODYSPLASTIC SYNDROME [None]
  - THROMBOCYTOPENIA [None]
  - MYELOCYTOSIS [None]
